FAERS Safety Report 7340638-5 (Version None)
Quarter: 2011Q1

REPORT INFORMATION
  Report Type: 
  Country: None (occurrence: None)
  Receive Date: 20110309
  Receipt Date: 20110302
  Transmission Date: 20110831
  Serious: Yes (Hospitalization)
  Sender: FDA-Public Use
  Company Number: CA-ROCHE-724637

PATIENT
  Sex: Male
  Weight: 90.9 kg

DRUGS (8)
  1. TEMOZOLOMIDE [Suspect]
     Indication: GLIOBLASTOMA
     Dosage: FREQUENCY: DAILY, DATE OF LAST DOSE PRIOR TO SAE: 21 JULY 2010, PERMANENTLY DISCONTINUED
     Route: 048
     Dates: start: 20100623, end: 20100826
  2. SENOKOT [Concomitant]
     Dates: start: 20100824
  3. DEXAMETHASONE [Concomitant]
     Dates: start: 20100819
  4. QUETIAPINE FUMARATE [Concomitant]
     Dates: start: 20100724
  5. PROCHLORPERAZINE [Concomitant]
     Dosage: TDD: PRN
     Dates: start: 20100801
  6. BEVACIZUMAB [Suspect]
     Indication: GLIOBLASTOMA
     Dosage: FORM: LIQUID, DATE OF LAST DOSE PRIOR TO SAE: 21 JULY 2010, PERMANENTLY DISCONTINUED
     Route: 042
     Dates: start: 20100623, end: 20100826
  7. TINZAPARIN [Concomitant]
     Dates: start: 20100706
  8. SEPTRA DS [Concomitant]
     Dosage: MONDAYS AND FRIDAYS
     Route: 048
     Dates: start: 20100806

REACTIONS (1)
  - OESOPHAGEAL CANDIDIASIS [None]
